FAERS Safety Report 6672541-8 (Version None)
Quarter: 2010Q2

REPORT INFORMATION
  Report Type: 
  Country: None (occurrence: None)
  Receive Date: 20100407
  Receipt Date: 20100407
  Transmission Date: 20101027
  Serious: Yes (Life-Threatening)
  Sender: FDA-Public Use
  Company Number: None

PATIENT
  Age: 85 Year
  Sex: Female
  Weight: 41.2773 kg

DRUGS (2)
  1. ZICAM CHEW CAPS MATRIX, INC. [Suspect]
     Indication: NASAL CONGESTION
     Dosage: 1 CAP ONCE
     Dates: start: 20100313, end: 20100314
  2. ZICAM CHEW CAPS MATRIX, INC. [Suspect]
     Indication: OROPHARYNGEAL PAIN
     Dosage: 1 CAP ONCE
     Dates: start: 20100313, end: 20100314

REACTIONS (2)
  - AGEUSIA [None]
  - HYPOAESTHESIA ORAL [None]
